FAERS Safety Report 9563775 (Version 1)
Quarter: 2013Q3

REPORT INFORMATION
  Report Type: Spontaneous
  Country: US (occurrence: None)
  Receive Date: 20130926
  Receipt Date: 20130926
  Transmission Date: 20140515
  Serious: Yes (Disabling, Other)
  Sender: FDA-Public Use
  Company Number: None

PATIENT
  Age: 33 Year
  Sex: Male
  Weight: 83.92 kg

DRUGS (1)
  1. KENALOG-40 [Suspect]
     Indication: INFLAMMATION
     Dosage: 200 MG PER 5 ML
     Dates: start: 20110216, end: 201105

REACTIONS (4)
  - Ocular hyperaemia [None]
  - Retinal haemorrhage [None]
  - Blindness unilateral [None]
  - Retinal detachment [None]
